FAERS Safety Report 4274888-1 (Version None)
Quarter: 2004Q1

REPORT INFORMATION
  Report Type: 
  Country: None (occurrence: None)
  Receive Date: 20040116
  Receipt Date: 20040113
  Transmission Date: 20041129
  Serious: Yes (Death)
  Sender: FDA-Public Use
  Company Number: 200313510GDS

PATIENT
  Age: 58 Year
  Sex: Male

DRUGS (9)
  1. CIPROFLOXACIN [Suspect]
     Indication: CYSTITIS
     Dosage: 500 MG, BID, ORAL
     Route: 048
     Dates: start: 20031017, end: 20030102
  2. ACETAMINOPHEN [Concomitant]
  3. THEOLAIR [Concomitant]
  4. SPIRVIA INHALER [Concomitant]
  5. DUOVENT [Concomitant]
  6. FORADIL [Concomitant]
  7. TRAMADOL HCL [Concomitant]
  8. PREDNISONE [Concomitant]
  9. AUGMENTIN [Concomitant]

REACTIONS (2)
  - HEPATIC FUNCTION ABNORMAL [None]
  - HEPATORENAL SYNDROME [None]
